FAERS Safety Report 7998742-4 (Version None)
Quarter: 2011Q4

REPORT INFORMATION
  Report Type: 
  Country: None (occurrence: None)
  Receive Date: 20111221
  Receipt Date: 20111212
  Transmission Date: 20120403
  Serious: Yes (Other)
  Sender: FDA-Public Use
  Company Number: US-PURDUE-USA-2011-0079754

PATIENT
  Sex: Female

DRUGS (2)
  1. OXYCODONE HCL TABLETS (91-490) [Concomitant]
     Indication: PRODUCT USED FOR UNKNOWN INDICATION
     Dosage: 15 MG, PRN
     Route: 048
  2. OXYCONTIN [Suspect]
     Indication: PRODUCT USED FOR UNKNOWN INDICATION
     Dosage: 30 MG, Q8H
     Route: 048

REACTIONS (4)
  - FALL [None]
  - PAIN [None]
  - INCORRECT DOSE ADMINISTERED [None]
  - INADEQUATE ANALGESIA [None]
